FAERS Safety Report 6551644-2 (Version None)
Quarter: 2010Q1

REPORT INFORMATION
  Report Type: 
  Country: None (occurrence: None)
  Receive Date: 20100120
  Receipt Date: 20100108
  Transmission Date: 20100710
  Serious: Yes (Other)
  Sender: FDA-Public Use
  Company Number: DSJ-2009-16807

PATIENT
  Age: 74 Year
  Sex: Male

DRUGS (4)
  1. OLMESARTAN MEDOXOMIL [Suspect]
     Indication: HYPERTENSION
     Dosage: 20 MG, PER ORAL
     Route: 048
     Dates: start: 20080919, end: 20091209
  2. AMARYL [Concomitant]
  3. METFORMIN HYDROCHLORIDE [Concomitant]
  4. TRICHLORMETHIAZIDE [Concomitant]

REACTIONS (2)
  - CEREBRAL ARTERY STENOSIS [None]
  - CEREBRAL INFARCTION [None]
